FAERS Safety Report 4759136-8 (Version None)
Quarter: 2005Q3

REPORT INFORMATION
  Report Type: 
  Country: None (occurrence: None)
  Receive Date: 20050831
  Receipt Date: 20050824
  Transmission Date: 20060218
  Serious: Yes (Life-Threatening)
  Sender: FDA-Public Use
  Company Number: ZONI002203

PATIENT
  Age: 60 Year
  Sex: Male

DRUGS (4)
  1. ZONISAMIDE [Suspect]
     Dosage: 209 MG, 1 IN 1 D, ORAL
     Route: 048
     Dates: start: 20050613, end: 20050801
  2. RILYFTER (CLOTIAZEPAM) [Concomitant]
  3. MARZULENE S (MARZULENE S) [Concomitant]
  4. BETAMETHASONE [Concomitant]

REACTIONS (4)
  - FAECAL INCONTINENCE [None]
  - OCULOMUCOCUTANEOUS SYNDROME [None]
  - PYREXIA [None]
  - STOMATITIS [None]
